FAERS Safety Report 23508652 (Version 2)
Quarter: 2024Q1

REPORT INFORMATION
  Report Type: Spontaneous
  Country: BR (occurrence: BR)
  Receive Date: 20240209
  Receipt Date: 20240216
  Transmission Date: 20240410
  Serious: Yes (Hospitalization)
  Sender: FDA-Public Use
  Company Number: BR-SERVIER-S24000919

PATIENT
  Age: 48 Year
  Sex: Male
  Weight: 118 kg

DRUGS (2)
  1. LONSURF [Suspect]
     Active Substance: TIPIRACIL HYDROCHLORIDE\TRIFLURIDINE
     Indication: Gastrointestinal cancer metastatic
     Dosage: 6 DF, QD ON DAYS 1-5 AND 8-12 OF EACH 28-DAY CYCLE
     Route: 048
     Dates: start: 202304
  2. AVASTIN [Concomitant]
     Active Substance: BEVACIZUMAB
     Indication: Gastrointestinal cancer metastatic
     Dosage: UNK, AT THE END AND AT THE BEGINNING OF EACH CYCLE
     Route: 065

REACTIONS (3)
  - Immunodeficiency [Unknown]
  - Product use issue [Recovered/Resolved]
  - Aphonia [Not Recovered/Not Resolved]

NARRATIVE: CASE EVENT DATE: 20230401
